FAERS Safety Report 17407096 (Version 4)
Quarter: 2023Q1

REPORT INFORMATION
  Report Type: Spontaneous
  Country: HR (occurrence: HR)
  Receive Date: 20200212
  Receipt Date: 20230223
  Transmission Date: 20230418
  Serious: Yes (Death, Life-Threatening, Hospitalization, Disabling, Other)
  Sender: FDA-Public Use
  Company Number: HR-BAXTER-2020BAX001399

PATIENT
  Age: 40 Year
  Sex: Female

DRUGS (31)
  1. ETOPOSIDE [Suspect]
     Active Substance: ETOPOSIDE
     Indication: Diffuse large B-cell lymphoma stage IV
     Dosage: FIVE CYCLES (R-CHOEP PROTOCOL)
  2. AZACITIDINE [Suspect]
     Active Substance: AZACITIDINE
     Indication: Acute myeloid leukaemia
  3. CIPROFLOXACIN [Suspect]
     Active Substance: CIPROFLOXACIN
     Indication: Prophylaxis
  4. METHYLPREDNISOLONE [Suspect]
     Active Substance: METHYLPREDNISOLONE
     Indication: Diffuse large B-cell lymphoma stage IV
  5. VINCRISTINE [Suspect]
     Active Substance: VINCRISTINE
     Indication: Diffuse large B-cell lymphoma stage IV
     Dosage: FIVE CYCLES (R-CHOEP PROTOCOL)
  6. CYCLOPHOSPHAMIDE [Suspect]
     Active Substance: CYCLOPHOSPHAMIDE
     Indication: Diffuse large B-cell lymphoma stage IV
  7. RITUXIMAB [Suspect]
     Active Substance: RITUXIMAB
     Indication: Diffuse large B-cell lymphoma stage IV
  8. VINBLASTINE [Suspect]
     Active Substance: VINBLASTINE
     Indication: Diffuse large B-cell lymphoma stage IV
  9. DOXORUBICIN [Suspect]
     Active Substance: DOXORUBICIN
     Indication: Diffuse large B-cell lymphoma stage IV
  10. THIOGUANINE [Suspect]
     Active Substance: THIOGUANINE
     Indication: Refractory anaemia with an excess of blasts
  11. ACYCLOVIR [Suspect]
     Active Substance: ACYCLOVIR
     Indication: Antibiotic prophylaxis
  12. CYCLOPHOSPHAMIDE [Suspect]
     Active Substance: CYCLOPHOSPHAMIDE
     Indication: Product used for unknown indication
     Dosage: STRENGTH: 1000 MG
  13. DOXIL [Suspect]
     Active Substance: DOXORUBICIN HYDROCHLORIDE
     Indication: Product used for unknown indication
     Dosage: THREE CYCLES (R-CHEVP PROTOCOL)
     Route: 042
  14. FLUCONAZOLE [Suspect]
     Active Substance: FLUCONAZOLE
     Indication: Antibiotic prophylaxis
  15. CONTROLOC [Concomitant]
     Active Substance: PANTOPRAZOLE SODIUM
  16. DIFLUCAN [Concomitant]
     Active Substance: FLUCONAZOLE
     Indication: Prophylaxis
  17. ACYCLOVIR [Concomitant]
     Active Substance: ACYCLOVIR
     Indication: Prophylaxis
  18. BETAMETHASONE DIPROPIONATE [Concomitant]
     Active Substance: BETAMETHASONE DIPROPIONATE
  19. CURASEPT [Concomitant]
     Dosage: MOUTHWASH THREE TIMES A DAY
  20. CARVEDILOL [Concomitant]
     Active Substance: CARVEDILOL
  21. GELCLAIR [Concomitant]
  22. FUROSEMIDE [Concomitant]
     Active Substance: FUROSEMIDE
  23. RAMIPRIL [Concomitant]
     Active Substance: RAMIPRIL
  24. ALDACTONE [Concomitant]
     Active Substance: SPIRONOLACTONE
  25. BENZYDAMINE [Concomitant]
     Active Substance: BENZYDAMINE
  26. LIDOCAINE [Concomitant]
     Active Substance: LIDOCAINE
  27. METILDIGOXIN [Concomitant]
     Active Substance: METILDIGOXIN
  28. METHYLPREDNISOLONE [Suspect]
     Active Substance: METHYLPREDNISOLONE
     Indication: Diffuse large B-cell lymphoma stage IV
  29. ETOPOSIDE [Suspect]
     Active Substance: ETOPOSIDE
     Indication: Diffuse large B-cell lymphoma stage I
     Dosage: (R-CHEVP PROTOCOL)
  30. RITUXIMAB [Suspect]
     Active Substance: RITUXIMAB
     Indication: Diffuse large B-cell lymphoma stage IV
  31. DOXORUBICIN [Suspect]
     Active Substance: DOXORUBICIN
     Indication: Diffuse large B-cell lymphoma stage IV
     Dosage: FIVE CYCLES (R-CHOEP PROTOCOL)

REACTIONS (17)
  - Leukaemia [Unknown]
  - Pancytopenia [Unknown]
  - Thrombocytopenia [Unknown]
  - Mouth ulceration [Unknown]
  - Staphylococcal sepsis [Fatal]
  - Aspergillus infection [Fatal]
  - Gingival ulceration [Not Recovered/Not Resolved]
  - Sinusitis [Fatal]
  - Neutropenia [Unknown]
  - Stenotrophomonas infection [Unknown]
  - Acute myeloid leukaemia [Unknown]
  - Congestive cardiomyopathy [Unknown]
  - Toxic neuropathy [Unknown]
  - Myelodysplastic syndrome [Unknown]
  - Enterococcal infection [Unknown]
  - Toxicity to various agents [Unknown]
  - Refractory anaemia with an excess of blasts [Unknown]
